FAERS Safety Report 5434582-8 (Version None)
Quarter: 2007Q3

REPORT INFORMATION
  Report Type: 
  Country: None (occurrence: None)
  Receive Date: 20070831
  Receipt Date: 20070801
  Transmission Date: 20080115
  Serious: No
  Sender: FDA-Public Use
  Company Number: A0667315A

PATIENT
  Age: 70 Year

DRUGS (1)
  1. ALLI [Suspect]
     Route: 048
     Dates: start: 20070710

REACTIONS (6)
  - DYSPHAGIA [None]
  - EYE SWELLING [None]
  - HYPERSENSITIVITY [None]
  - SPEECH DISORDER [None]
  - SWOLLEN TONGUE [None]
  - THROAT TIGHTNESS [None]
